FAERS Safety Report 16152916 (Version 4)
Quarter: 2021Q1

REPORT INFORMATION
  Report Type: Other
  Country: US (occurrence: US)
  Receive Date: 20190403
  Receipt Date: 20210104
  Transmission Date: 20210419
  Serious: Yes (Other)
  Sender: FDA-Public Use
  Company Number: US-ROCHE-2246111

PATIENT
  Age: 34 Year
  Sex: Female
  Weight: 59.02 kg

DRUGS (9)
  1. OCREVUS [Suspect]
     Active Substance: OCRELIZUMAB
     Dosage: ONGOING:YES
     Route: 042
     Dates: start: 20180621
  2. MOTRIN [Concomitant]
     Active Substance: IBUPROFEN
     Dosage: AS NEEDED ;ONGOING: YES
  3. ZANAFLEX [Concomitant]
     Active Substance: TIZANIDINE HYDROCHLORIDE
     Indication: MUSCLE SPASMS
     Dates: start: 2006
  4. OCREVUS [Suspect]
     Active Substance: OCRELIZUMAB
     Route: 042
     Dates: start: 2018
  5. SOLU?MEDROL [Suspect]
     Active Substance: METHYLPREDNISOLONE SODIUM SUCCINATE
     Indication: PREMEDICATION
     Dosage: ONE TIME DOSE
     Route: 065
     Dates: start: 202007, end: 202007
  6. IBUPROFEN. [Concomitant]
     Active Substance: IBUPROFEN
     Indication: INFLAMMATION
     Route: 048
  7. OCREVUS [Suspect]
     Active Substance: OCRELIZUMAB
     Indication: RELAPSING MULTIPLE SCLEROSIS
     Dosage: SECOND HALF DOSE
     Route: 042
     Dates: start: 20180606
  8. OCREVUS [Suspect]
     Active Substance: OCRELIZUMAB
     Indication: PROGRESSIVE MULTIPLE SCLEROSIS
     Dosage: ONGOING:YES?FIRST HALF DOSE
     Route: 042
     Dates: start: 201805
  9. BENADRYL [Suspect]
     Active Substance: DIPHENHYDRAMINE HYDROCHLORIDE
     Indication: PREMEDICATION
     Dosage: ONE TIME DOSE
     Route: 065
     Dates: start: 202007, end: 202007

REACTIONS (15)
  - Uhthoff^s phenomenon [Not Recovered/Not Resolved]
  - Heart rate increased [Recovered/Resolved]
  - Sinusitis [Not Recovered/Not Resolved]
  - Hypertension [Recovered/Resolved]
  - Influenza [Not Recovered/Not Resolved]
  - Respiratory disorder [Not Recovered/Not Resolved]
  - Illness [Not Recovered/Not Resolved]
  - Nasopharyngitis [Not Recovered/Not Resolved]
  - Heart rate decreased [Recovered/Resolved]
  - Multiple sclerosis [Unknown]
  - Clumsiness [Not Recovered/Not Resolved]
  - Multiple sclerosis relapse [Recovered/Resolved]
  - Hypotension [Recovered/Resolved]
  - Upper respiratory tract infection [Recovered/Resolved]
  - Feeling abnormal [Not Recovered/Not Resolved]

NARRATIVE: CASE EVENT DATE: 201805
